FAERS Safety Report 8454477-5 (Version None)
Quarter: 2012Q2

REPORT INFORMATION
  Report Type: 
  Country: None (occurrence: None)
  Receive Date: 20120621
  Receipt Date: 20120612
  Transmission Date: 20120825
  Serious: No
  Sender: FDA-Public Use
  Company Number: US-BIOGENIDEC-2012BI020913

PATIENT
  Sex: Male

DRUGS (3)
  1. TYSABRI [Suspect]
     Route: 042
     Dates: start: 20080701, end: 20101025
  2. TYSABRI [Suspect]
     Indication: MULTIPLE SCLEROSIS
     Route: 042
     Dates: end: 20050101
  3. TYSABRI [Suspect]
     Route: 042
     Dates: start: 20110526

REACTIONS (4)
  - INTERVERTEBRAL DISC PROTRUSION [None]
  - FEELING OF DESPAIR [None]
  - MEMORY IMPAIRMENT [None]
  - MULTIPLE SCLEROSIS [None]
